FAERS Safety Report 16472460 (Version 3)
Quarter: 2021Q2

REPORT INFORMATION
  Report Type: Report from Study
  Country: JP (occurrence: JP)
  Receive Date: 20190625
  Receipt Date: 20210407
  Transmission Date: 20210716
  Serious: Yes (Death, Life-Threatening, Hospitalization, Other)
  Sender: FDA-Public Use
  Company Number: JP-BRISTOL-MYERS SQUIBB COMPANY-BMS-2019-060921

PATIENT
  Age: 74 Year
  Sex: Male
  Weight: 53.5 kg

DRUGS (1)
  1. NIVOLUMAB [Suspect]
     Active Substance: NIVOLUMAB
     Indication: PLEURAL MESOTHELIOMA MALIGNANT
     Dosage: 240 MILLIGRAM
     Route: 041
     Dates: start: 20190430, end: 20190514

REACTIONS (3)
  - Off label use [Unknown]
  - Malignant neoplasm progression [Fatal]
  - Lung disorder [Recovering/Resolving]

NARRATIVE: CASE EVENT DATE: 20190516
